FAERS Safety Report 7983811-5 (Version None)
Quarter: 2011Q4

REPORT INFORMATION
  Report Type: 
  Country: None (occurrence: None)
  Receive Date: 20111216
  Receipt Date: 20111207
  Transmission Date: 20120403
  Serious: Yes (Death)
  Sender: FDA-Public Use
  Company Number: CH-BIOGENIDEC-2011BI035474

PATIENT
  Age: 68 Year
  Sex: Male

DRUGS (4)
  1. MIANSERIN (MIANSERINI HYDROCHLORIDUM) [Concomitant]
     Indication: DEPRESSION
  2. TYSABRI [Suspect]
     Indication: MULTIPLE SCLEROSIS
     Route: 042
  3. VENLAFAXIN (VENLAFAXINUM UT VENLAFAXINI HYDROCHLORIDUM) [Concomitant]
     Indication: DEPRESSION
  4. MIRTAZAPINE [Concomitant]

REACTIONS (4)
  - DIABETES MELLITUS [None]
  - EMBOLISM [None]
  - ARTHROPATHY [None]
  - ANTIDEPRESSANT DRUG LEVEL DECREASED [None]
